FAERS Safety Report 6554181-4 (Version None)
Quarter: 2010Q1

REPORT INFORMATION
  Report Type: 
  Country: None (occurrence: None)
  Receive Date: 20100122
  Receipt Date: 20100104
  Transmission Date: 20100710
  Serious: Yes (Other)
  Sender: FDA-Public Use
  Company Number: AVE_01364_2010

PATIENT
  Sex: Male
  Weight: 78.0187 kg

DRUGS (11)
  1. CLONIDINE [Suspect]
     Indication: HYPERTENSION
     Dosage: (0.2 MG QD, TOPICAL) (0.1 MG QD TOPICAL), (0.3 MG QD TOPICAL)
     Route: 061
     Dates: start: 20090901
  2. CLONIDINE [Suspect]
     Indication: HYPERTENSION
     Dosage: (0.2 MG QD, TOPICAL) (0.1 MG QD TOPICAL), (0.3 MG QD TOPICAL)
     Route: 061
     Dates: start: 20090904
  3. CLONIDINE [Suspect]
     Indication: HYPERTENSION
     Dosage: (0.2 MG QD, TOPICAL) (0.1 MG QD TOPICAL), (0.3 MG QD TOPICAL)
     Route: 061
     Dates: start: 20091227
  4. CLONIDINE [Suspect]
  5. DIOVAN [Concomitant]
  6. TOPROL-XL [Concomitant]
  7. CLONIDINE [Concomitant]
  8. DOXAZOSIN MESYLATE [Concomitant]
  9. TEKTURNA /01763601/) [Concomitant]
  10. LIPITOR [Concomitant]
  11. COUMADIN VS PLACEBO [Concomitant]

REACTIONS (4)
  - DRUG INEFFECTIVE [None]
  - DRY MOUTH [None]
  - HYPERTENSIVE CRISIS [None]
  - PRODUCT QUALITY ISSUE [None]
